FAERS Safety Report 7770229-3 (Version None)
Quarter: 2011Q3

REPORT INFORMATION
  Report Type: 
  Country: None (occurrence: None)
  Receive Date: 20110922
  Receipt Date: 20110607
  Transmission Date: 20111222
  Serious: No
  Sender: FDA-Public Use
  Company Number: US-ASTRAZENECA-2011SE34750

PATIENT
  Age: 62 Year
  Sex: Female
  Weight: 69.4 kg

DRUGS (4)
  1. SYMBICORT [Concomitant]
  2. ALBUTEROL [Concomitant]
     Dosage: PRN
  3. SEROQUEL [Suspect]
     Indication: ANXIETY
     Route: 048
     Dates: start: 20090101
  4. XANAX [Concomitant]

REACTIONS (3)
  - PNEUMONIA [None]
  - FALL [None]
  - FOOT FRACTURE [None]
